FAERS Safety Report 7933314-9 (Version None)
Quarter: 2011Q4

REPORT INFORMATION
  Report Type: 
  Country: None (occurrence: None)
  Receive Date: 20111118
  Receipt Date: 20111110
  Transmission Date: 20120403
  Serious: Yes (Other)
  Sender: FDA-Public Use
  Company Number: 1000024027

PATIENT

DRUGS (5)
  1. LISINOPRIL [Concomitant]
  2. ESCITALOPRAM [Suspect]
     Indication: DEPRESSION
     Dosage: 20 MG (20 MG,1 IN 1 D),ORAL
     Route: 048
     Dates: start: 20110808
  3. METOPROLOL SUCCINATE [Concomitant]
  4. LOVASTATIN (LOVASTATIN)(LOVASTATIN) [Concomitant]
  5. BENADRYL (DIPHENHYDRAMINE)(DIPHENHYDRAMINE) [Concomitant]

REACTIONS (8)
  - HYPERTENSION [None]
  - NIGHTMARE [None]
  - GRAND MAL CONVULSION [None]
  - HYPERLIPIDAEMIA [None]
  - FALL [None]
  - RED BLOOD CELL COUNT DECREASED [None]
  - CONVULSION [None]
  - DEPRESSION [None]
